FAERS Safety Report 14142415 (Version 9)
Quarter: 2018Q4

REPORT INFORMATION
  Report Type: Spontaneous
  Country: US (occurrence: US)
  Receive Date: 20171030
  Receipt Date: 20181214
  Transmission Date: 20190204
  Serious: Yes (Other)
  Sender: FDA-Public Use
  Company Number: US-CELGENEUS-USA-20170907280

PATIENT
  Sex: Female
  Weight: 84.44 kg

DRUGS (3)
  1. POMALYST [Suspect]
     Active Substance: POMALIDOMIDE
     Indication: PLASMA CELL MYELOMA
     Dosage: 4 MILLIGRAM
     Route: 048
     Dates: start: 20170821, end: 20180515
  2. KYPROLIS [Concomitant]
     Active Substance: CARFILZOMIB
     Indication: PLASMA CELL MYELOMA
     Route: 041
  3. POMALYST [Suspect]
     Active Substance: POMALIDOMIDE
     Dosage: 2 MILLIGRAM
     Route: 048
     Dates: start: 201805

REACTIONS (15)
  - Laboratory test abnormal [Not Recovered/Not Resolved]
  - Flatulence [Unknown]
  - Influenza [Unknown]
  - Oedema peripheral [Not Recovered/Not Resolved]
  - Abdominal pain upper [Not Recovered/Not Resolved]
  - Muscle spasms [Recovered/Resolved with Sequelae]
  - Haemoglobin decreased [Unknown]
  - White blood cell count decreased [Recovering/Resolving]
  - Asthma [Not Recovered/Not Resolved]
  - Vitamin D decreased [Unknown]
  - Limb mass [Unknown]
  - Abdominal discomfort [Unknown]
  - Bone pain [Unknown]
  - Asthenia [Unknown]
  - Red blood cell count decreased [Unknown]

NARRATIVE: CASE EVENT DATE: 2017
